FAERS Safety Report 22537309 (Version 1)
Quarter: 2023Q2

REPORT INFORMATION
  Report Type: Spontaneous
  Country: US (occurrence: None)
  Receive Date: 20230607
  Receipt Date: 20230607
  Transmission Date: 20230722
  Serious: Yes (Death)
  Sender: FDA-Public Use
  Company Number: None

PATIENT
  Sex: Male

DRUGS (4)
  1. GLATIRAMER [Suspect]
     Active Substance: GLATIRAMER
     Indication: Multiple sclerosis
     Route: 058
     Dates: start: 20180501
  2. LISINOPRIL [Concomitant]
     Active Substance: LISINOPRIL
  3. MOTRIN CHILD SUS [Concomitant]
  4. NEZIUM GRA [Concomitant]

REACTIONS (1)
  - Death [None]
